FAERS Safety Report 6060212-0 (Version None)
Quarter: 2009Q1

REPORT INFORMATION
  Report Type: 
  Country: None (occurrence: None)
  Receive Date: 20090129
  Receipt Date: 20090116
  Transmission Date: 20090719
  Serious: Yes (Hospitalization)
  Sender: FDA-Public Use
  Company Number: DSA_32854_2008

PATIENT
  Sex: Female

DRUGS (4)
  1. LORAZEPAM [Suspect]
     Indication: DRUG USE FOR UNKNOWN INDICATION
     Dosage: (2.5 MG QD ORAL)
     Route: 048
  2. ALCOHOL (ALCOHOL) [Suspect]
     Indication: DRUG USE FOR UNKNOWN INDICATION
     Dosage: (^MORE THAN OTHER DAYS^ ORAL)
     Route: 048
     Dates: start: 20081101, end: 20081101
  3. LUDIOMIL /00331902/ (LUDIOMIL) (NOT SPECIFIED) [Suspect]
     Indication: DEPRESSION
     Dosage: (DF ORAL)
     Route: 048
  4. RIFUN (RIFUN - PANTOPRAZOLE ) (NOT SPECIFIED) [Suspect]
     Indication: GASTRITIS
     Dosage: (DF ORAL)
     Route: 048

REACTIONS (4)
  - ALCOHOL USE [None]
  - DRUG DEPENDENCE [None]
  - DRUG INTERACTION [None]
  - DRUG LEVEL INCREASED [None]
